FAERS Safety Report 9807599 (Version 1)
Quarter: 2014Q1

REPORT INFORMATION
  Report Type: Spontaneous
  Country: US (occurrence: US)
  Receive Date: 20140110
  Receipt Date: 20140110
  Transmission Date: 20141002
  Serious: No
  Sender: FDA-Public Use
  Company Number: US-SANOFI-AVENTIS-2013SA050768

PATIENT
  Age: 72 Year
  Sex: Male
  Weight: 68 kg

DRUGS (2)
  1. CLOPIDOGREL BISULFATE [Suspect]
     Indication: CEREBROVASCULAR ACCIDENT
     Dosage: FREQUENCY- ONCE A DAILY
     Route: 048
  2. NAMENDA [Concomitant]

REACTIONS (3)
  - Blood viscosity increased [Unknown]
  - Dizziness [Unknown]
  - Palpitations [Unknown]
